FAERS Safety Report 10019985 (Version 2)
Quarter: 2014Q2

REPORT INFORMATION
  Report Type: Other
  Country: US (occurrence: US)
  Receive Date: 20140318
  Receipt Date: 20140610
  Transmission Date: 20141212
  Serious: Yes (Other)
  Sender: FDA-Public Use
  Company Number: US-ACORDA-ACO_102305_2014

PATIENT
  Age: 60 Year
  Sex: Female
  Weight: 60.32 kg

DRUGS (9)
  1. AMPYRA [Suspect]
     Indication: FALL
     Dosage: 10 MG, BID
     Route: 048
     Dates: start: 20130415, end: 20140307
  2. AMPYRA [Suspect]
     Indication: MUSCULAR WEAKNESS
  3. AMPYRA [Suspect]
     Indication: BALANCE DISORDER
  4. COPAXONE [Concomitant]
     Indication: MULTIPLE SCLEROSIS
     Dosage: 20 MG, QD
     Route: 058
  5. AMANTADINE [Concomitant]
     Indication: PRODUCT USED FOR UNKNOWN INDICATION
     Dosage: 100 MG, BID
     Route: 048
  6. FLUOXETINE [Concomitant]
     Indication: PRODUCT USED FOR UNKNOWN INDICATION
     Dosage: 20 MG, QD
     Route: 048
  7. ESTRADIOL [Concomitant]
     Indication: PRODUCT USED FOR UNKNOWN INDICATION
     Dosage: 0.5 MG, QD
     Route: 048
  8. VITAMIN D [Concomitant]
     Indication: PRODUCT USED FOR UNKNOWN INDICATION
     Dosage: 800 IU, QD
     Route: 048
  9. MULTIVITAMIN [Concomitant]
     Indication: PRODUCT USED FOR UNKNOWN INDICATION
     Dosage: UNK, QD
     Route: 048

REACTIONS (8)
  - Convulsion [Recovered/Resolved]
  - Urinary tract infection [Unknown]
  - Blood urea increased [Recovered/Resolved]
  - Blood creatinine increased [Recovered/Resolved]
  - Glomerular filtration rate decreased [Recovered/Resolved]
  - Dehydration [Recovered/Resolved]
  - Blood glucose increased [Unknown]
  - Carbon dioxide decreased [Recovered/Resolved]
